FAERS Safety Report 16983481 (Version 1)
Quarter: 2019Q4

REPORT INFORMATION
  Report Type: Spontaneous
  Country: US (occurrence: US)
  Receive Date: 20191101
  Receipt Date: 20191101
  Transmission Date: 20200122
  Serious: Yes (Other)
  Sender: FDA-Public Use
  Company Number: NVSC2019US021582

PATIENT
  Age: 42 Year
  Sex: Male

DRUGS (1)
  1. ACETAMINOPHEN (PARACETAMOL) [Suspect]
     Active Substance: ACETAMINOPHEN
     Indication: PRODUCT USED FOR UNKNOWN INDICATION
     Dosage: 27 G, UNKNOWN
     Route: 065

REACTIONS (4)
  - Overdose [Unknown]
  - Haemolysis [Recovering/Resolving]
  - Liver injury [Recovering/Resolving]
  - Renal injury [Recovering/Resolving]
